FAERS Safety Report 7507245-2 (Version None)
Quarter: 2011Q2

REPORT INFORMATION
  Report Type: 
  Country: None (occurrence: None)
  Receive Date: 20110526
  Receipt Date: 20110513
  Transmission Date: 20111010
  Serious: Yes (Other)
  Sender: FDA-Public Use
  Company Number: PHHY2010BR80145

PATIENT
  Sex: Female

DRUGS (3)
  1. RASILEZ HCT [Suspect]
     Route: 048
  2. RASILEZ HCT [Suspect]
     Dosage: 300/12.5MG
  3. LOSARTAN POTASSIUM [Suspect]

REACTIONS (2)
  - HYPERTENSION [None]
  - MALAISE [None]
